FAERS Safety Report 5789456-X (Version None)
Quarter: 2008Q2

REPORT INFORMATION
  Report Type: 
  Country: None (occurrence: None)
  Receive Date: 20080626
  Receipt Date: 20080212
  Transmission Date: 20081010
  Serious: No
  Sender: FDA-Public Use
  Company Number: US-ASTRAZENECA-2008UW02964

PATIENT
  Age: 6 Year
  Sex: Female

DRUGS (3)
  1. PULMICORT-100 [Suspect]
     Indication: ASTHMA
     Route: 055
  2. FLOXIN [Concomitant]
  3. XOPENEX [Concomitant]

REACTIONS (5)
  - CARDIAC DISORDER [None]
  - LYMPHADENITIS [None]
  - NERVOUS SYSTEM DISORDER [None]
  - PYREXIA [None]
  - VOMITING [None]
